FAERS Safety Report 10095214 (Version 1)
Quarter: 2014Q2

REPORT INFORMATION
  Report Type: Spontaneous
  Country: GB (occurrence: None)
  Receive Date: 20140418
  Receipt Date: 20140418
  Transmission Date: 20141212
  Serious: Yes (Life-Threatening)
  Sender: FDA-Public Use
  Company Number: 2014GB00358

PATIENT
  Sex: 0

DRUGS (3)
  1. EPIRUBICIN HYDROCHLORIDE [Suspect]
     Indication: OESOPHAGEAL ADENOCARCINOMA
     Dosage: A SLOW BOLUS OF 50 MG/M2 DAY 1, INTRAVENOUS
     Route: 042
  2. CARBOPLATIN [Suspect]
     Indication: OESOPHAGEAL ADENOCARCINOMA
     Dosage: AUC5 IN 500 ML 5 PERCENT DEXTROSE IV INFUSED OVER 1 H IN 3 WEEK CYCLES, INFUSION
  3. CAPECITABINE [Suspect]
     Indication: OESOPHAGEAL ADENOCARCINOMA
     Dosage: 625 MG/M2 WITHIN 30 MIN OF A MEAL ON DAYS 1-21 OF EACH TREATMENT CYCLE, ORAL
     Route: 048

REACTIONS (1)
  - Dyspnoea [None]
